FAERS Safety Report 23747121 (Version 1)
Quarter: 2024Q2

REPORT INFORMATION
  Report Type: Spontaneous
  Country: DE (occurrence: DE)
  Receive Date: 20240416
  Receipt Date: 20240416
  Transmission Date: 20240716
  Serious: Yes (Hospitalization, Other)
  Sender: FDA-Public Use
  Company Number: DE-Gedeon Richter Plc.-2024_GR_003393

PATIENT
  Age: 49 Year
  Sex: Female

DRUGS (1)
  1. ESTRADIOL\NORETHINDRONE ACETATE\RELUGOLIX [Suspect]
     Active Substance: ESTRADIOL\NORETHINDRONE ACETATE\RELUGOLIX
     Indication: Endometriosis
     Dosage: 1 TABLET PER DAY
     Route: 048
     Dates: start: 20240127, end: 20240206

REACTIONS (6)
  - Heavy menstrual bleeding [Recovered/Resolved]
  - Pelvic inflammatory disease [Recovered/Resolved]
  - Loss of consciousness [Recovered/Resolved]
  - Abdominal pain lower [Recovered/Resolved]
  - Blood potassium decreased [Recovered/Resolved]
  - Uterine leiomyoma [Recovered/Resolved]

NARRATIVE: CASE EVENT DATE: 20240202
